FAERS Safety Report 7631486-7 (Version None)
Quarter: 2011Q3

REPORT INFORMATION
  Report Type: 
  Country: None (occurrence: None)
  Receive Date: 20110715
  Receipt Date: 20110630
  Transmission Date: 20111222
  Serious: Yes (Death, Other)
  Sender: FDA-Public Use
  Company Number: AMAG2010000401

PATIENT
  Age: 72 Year
  Sex: Female
  Weight: 86.7 kg

DRUGS (13)
  1. FERAHEME [Suspect]
     Indication: IRON DEFICIENCY ANAEMIA
     Dosage: MG, SINGLE, INTRAVENOUS
     Route: 042
     Dates: start: 20101108, end: 20101108
  2. EPOETIN (EPOETIN ALFA) [Suspect]
     Dosage: 8100 UT, INTRAVENOUS
     Route: 042
     Dates: start: 20101108, end: 20101108
  3. FLUCONAZOLE [Concomitant]
  4. DIPHENHYDRAMINE HCL [Concomitant]
  5. NEPHROCAPS (ASCORBIC ACID, BIOTIN, CYANOCOBALAMIN, FOLIC ACID, NICOTIN [Concomitant]
  6. HECTOROL [Suspect]
     Dosage: IUG SINGLE, INTRAVENOUS
     Route: 042
     Dates: start: 20101108, end: 20101108
  7. LEVOTHYROXINE SODIUM [Concomitant]
  8. REPAGLINIDE [Concomitant]
  9. SIMVASTATIN [Concomitant]
  10. GAVISCON (ALGINIC ACID, ALUMINUM HYDROXIDE GEL, DRIED, MAGNESIUM TRISI [Concomitant]
  11. ACETAMINOPHEN [Concomitant]
  12. NITROGLYCERIN [Concomitant]
  13. CLONIDINE [Concomitant]

REACTIONS (51)
  - FLUSHING [None]
  - HYPERTENSIVE HEART DISEASE [None]
  - GALLBLADDER CHOLESTEROLOSIS [None]
  - OBESITY [None]
  - UNRESPONSIVE TO STIMULI [None]
  - CYANOSIS [None]
  - CORONARY ARTERY STENOSIS [None]
  - TRAUMATIC FRACTURE [None]
  - MYOCARDIAL ISCHAEMIA [None]
  - MYOCARDIAL FIBROSIS [None]
  - HEPATITIS [None]
  - COLITIS [None]
  - DRUG HYPERSENSITIVITY [None]
  - VOMITING [None]
  - RESPIRATORY ARREST [None]
  - MALAISE [None]
  - NO THERAPEUTIC RESPONSE [None]
  - SUDDEN DEATH [None]
  - RESPIRATORY TRACT OEDEMA [None]
  - OBSTRUCTIVE AIRWAYS DISORDER [None]
  - PLEURAL EFFUSION [None]
  - STERNAL FRACTURE [None]
  - PULMONARY CONGESTION [None]
  - HEPATIC FIBROSIS [None]
  - TUBULOINTERSTITIAL NEPHRITIS [None]
  - SPUTUM ABNORMAL [None]
  - ECCHYMOSIS [None]
  - COLITIS ISCHAEMIC [None]
  - HEPATIC STEATOSIS [None]
  - ARTERIOSCLEROSIS CORONARY ARTERY [None]
  - NEPHROSCLEROSIS [None]
  - OEDEMA PERIPHERAL [None]
  - CONGESTIVE CARDIOMYOPATHY [None]
  - LARGE INTESTINAL HAEMORRHAGE [None]
  - TRYPTASE INCREASED [None]
  - PULSE ABSENT [None]
  - DYSPNOEA [None]
  - DIZZINESS [None]
  - ILIAC ARTERY STENOSIS [None]
  - HEPATIC CONGESTION [None]
  - KIDNEY FIBROSIS [None]
  - RENAL TUBULAR NECROSIS [None]
  - PULMONARY EOSINOPHILIA [None]
  - HYPOTENSION [None]
  - AORTIC VALVE CALCIFICATION [None]
  - AORTIC ARTERIOSCLEROSIS [None]
  - COELIAC ARTERY STENOSIS [None]
  - RESPIRATORY TRACT HAEMORRHAGE [None]
  - CELL DEATH [None]
  - LARGE INTESTINAL ULCER [None]
  - ACCIDENTAL DEATH [None]
